FAERS Safety Report 8802924 (Version 1)
Quarter: 2012Q4

REPORT INFORMATION
  Report Type: 
  Country: US (occurrence: US)
  Receive Date: 20120924
  Receipt Date: 20120924
  Transmission Date: 20130627
  Serious: No
  Sender: FDA-Public Use
  Company Number: US-PFIZER INC-2012234191

PATIENT
  Age: 52 Year
  Sex: Female

DRUGS (5)
  1. LYRICA [Suspect]
     Indication: NEUROPATHY PERIPHERAL
     Dosage: 200 mg, 2x/day
     Route: 048
     Dates: end: 201104
  2. LYRICA [Suspect]
     Dosage: 200 mg, 2x/day
     Route: 048
     Dates: start: 201202
  3. GABAPENTIN [Suspect]
     Indication: NEUROPATHY PERIPHERAL
     Dosage: UNK
     Dates: start: 201107, end: 201201
  4. LISINOPRIL W/HYDROCHLOROTHIAZIDE [Concomitant]
     Indication: HYPERTENSION
     Dosage: 20/12.5 mg, UNK
  5. LOVASTATIN [Concomitant]
     Indication: BLOOD CHOLESTEROL INCREASED
     Dosage: 40 mg, UNK
     Dates: end: 201205

REACTIONS (2)
  - Drug ineffective [Unknown]
  - Product expiration date issue [Unknown]
